FAERS Safety Report 10595248 (Version 1)
Quarter: 2014Q4

REPORT INFORMATION
  Report Type: Spontaneous
  Country: US (occurrence: None)
  Receive Date: 20141118
  Receipt Date: 20141118
  Transmission Date: 20150529
  Serious: Yes (Hospitalization)
  Sender: FDA-Public Use
  Company Number: 2014HINLIT0995

PATIENT
  Age: 62 Year
  Sex: Male

DRUGS (7)
  1. PHENYLEPHRINE UNKNOWN [Concomitant]
  2. PROPOFOL INFUSION [Concomitant]
     Active Substance: PROPOFOL
  3. ESCITALOPRAM [Suspect]
     Active Substance: ESCITALOPRAM OXALATE
     Indication: PRODUCT USED FOR UNKNOWN INDICATION
  4. VASOPRESSIN. [Concomitant]
     Active Substance: VASOPRESSIN
  5. SODIUM BICARBONATE UNKNOWN [Concomitant]
  6. NOREPINEPHRINE INFUSION [Concomitant]
  7. METHYLTHIONINIUM CHLORIDE [Suspect]
     Active Substance: METHYLENE BLUE
     Indication: PRODUCT USED FOR UNKNOWN INDICATION

REACTIONS (7)
  - Cardiovascular disorder [None]
  - Hyperthermia [None]
  - Muscle rigidity [None]
  - Drug interaction [None]
  - Phaeochromocytoma [None]
  - Encephalopathy [None]
  - Serotonin syndrome [None]
